FAERS Safety Report 5491501-6 (Version None)
Quarter: 2007Q4

REPORT INFORMATION
  Report Type: 
  Country: None (occurrence: None)
  Receive Date: 20071022
  Receipt Date: 20071012
  Transmission Date: 20080405
  Serious: Yes (Hospitalization)
  Sender: FDA-Public Use
  Company Number: PHBS2007JP14071

PATIENT
  Age: 89 Year
  Sex: Female
  Weight: 42 kg

DRUGS (11)
  1. DIOVAN [Suspect]
     Indication: HYPERTENSION
     Dosage: 40 MG/DAY
     Route: 048
     Dates: start: 20070720, end: 20070817
  2. DILTIAZEM HCL [Suspect]
     Indication: ANGINA PECTORIS
     Dosage: 100 MG/DAY
     Route: 048
     Dates: start: 20070615, end: 20070817
  3. ARICEPT [Suspect]
     Dosage: 5MG
     Route: 048
     Dates: start: 20070316
  4. FAMOGAST [Concomitant]
     Indication: GASTRITIS
     Dosage: 1 DF, UNK
     Route: 048
     Dates: start: 20060519
  5. URSO 250 [Concomitant]
     Indication: CHOLECYSTECTOMY
     Dosage: 300 MG, UNK
     Route: 048
     Dates: start: 20060519
  6. TREPIBUTONE [Concomitant]
     Indication: CHOLECYSTECTOMY
     Dosage: 120 MG, UNK
     Route: 048
     Dates: start: 20060519
  7. CONIEL [Concomitant]
     Indication: HYPERTENSION
     Dosage: 4 MG, UNK
     Route: 048
     Dates: start: 20060616
  8. NITRODERM [Concomitant]
     Indication: ANGINA PECTORIS
     Dosage: 2 DF, UNK
     Dates: start: 20060915
  9. SIGMART [Concomitant]
     Indication: ANGINA PECTORIS
     Dosage: 15 MG, UNK
     Route: 048
     Dates: start: 20070623
  10. LASIX [Concomitant]
     Indication: CARDIAC FAILURE
     Dosage: 10 MG, UNK
     Route: 048
     Dates: start: 20070615
  11. DOXAZOSIN MESYLATE [Concomitant]
     Route: 048

REACTIONS (31)
  - ALANINE AMINOTRANSFERASE INCREASED [None]
  - ASPARTATE AMINOTRANSFERASE INCREASED [None]
  - ATELECTASIS [None]
  - ATRIOVENTRICULAR BLOCK COMPLETE [None]
  - BLOOD ALKALINE PHOSPHATASE INCREASED [None]
  - BLOOD BILIRUBIN INCREASED [None]
  - BLOOD CREATININE INCREASED [None]
  - BLOOD GLUCOSE INCREASED [None]
  - BLOOD LACTATE DEHYDROGENASE INCREASED [None]
  - BLOOD POTASSIUM INCREASED [None]
  - BLOOD SODIUM INCREASED [None]
  - BLOOD UREA INCREASED [None]
  - CARDIAC FAILURE [None]
  - CARDIAC PACEMAKER INSERTION [None]
  - DECREASED APPETITE [None]
  - ELECTROCARDIOGRAM ABNORMAL [None]
  - EYELID OEDEMA [None]
  - GAMMA-GLUTAMYLTRANSFERASE INCREASED [None]
  - GENERAL PHYSICAL HEALTH DETERIORATION [None]
  - HAEMATOCRIT DECREASED [None]
  - HAEMOGLOBIN DECREASED [None]
  - HEPATIC FUNCTION ABNORMAL [None]
  - HYPERKALAEMIA [None]
  - HYPOTENSION [None]
  - PLEURAL EFFUSION [None]
  - RED BLOOD CELL COUNT DECREASED [None]
  - RESPIRATORY DISORDER [None]
  - SICK SINUS SYNDROME [None]
  - SINUS ARREST [None]
  - SINUS BRADYCARDIA [None]
  - WHITE BLOOD CELL COUNT DECREASED [None]
